FAERS Safety Report 7472458-5 (Version None)
Quarter: 2011Q2

REPORT INFORMATION
  Report Type: 
  Country: None (occurrence: None)
  Receive Date: 20110511
  Receipt Date: 20110505
  Transmission Date: 20111010
  Serious: Yes (Life-Threatening, Hospitalization)
  Sender: FDA-Public Use
  Company Number: US-SANOFI-AVENTIS-2011SA028321

PATIENT
  Age: 35 Year
  Sex: Female

DRUGS (2)
  1. GLUCOTROL XL [Interacting]
     Route: 065
  2. ALLEGRA D 24 HOUR [Suspect]
     Dosage: TOOK 1 TABLET ON AN EMPTY STOMACH
     Route: 048
     Dates: start: 20020101, end: 20020101

REACTIONS (2)
  - HYPOGLYCAEMIA [None]
  - DRUG INTERACTION [None]
